FAERS Safety Report 8342297-1 (Version None)
Quarter: 2012Q2

REPORT INFORMATION
  Report Type: 
  Country: None (occurrence: None)
  Receive Date: 20120507
  Receipt Date: 20120430
  Transmission Date: 20120825
  Serious: No
  Sender: FDA-Public Use
  Company Number: US-B.I. PHARMACEUTICALS,INC./RIDGEFIELD-2012-BP-09810BP

PATIENT
  Sex: Female

DRUGS (4)
  1. PRADAXA [Suspect]
     Indication: THROMBOSIS PROPHYLAXIS
     Dosage: 300 MG
     Route: 048
     Dates: start: 20120421
  2. FLEXERIL [Concomitant]
     Indication: MUSCLE SPASMS
  3. PRADAXA [Suspect]
     Indication: DEEP VEIN THROMBOSIS
  4. HYDROCODONE BITARTRATE [Concomitant]
     Indication: PAIN IN EXTREMITY

REACTIONS (5)
  - CONTUSION [None]
  - PAIN [None]
  - PALPITATIONS [None]
  - OEDEMA PERIPHERAL [None]
  - OFF LABEL USE [None]
